FAERS Safety Report 23765883 (Version 1)
Quarter: 2024Q2

REPORT INFORMATION
  Report Type: Spontaneous
  Country: US (occurrence: None)
  Receive Date: 20240421
  Receipt Date: 20240421
  Transmission Date: 20240716
  Serious: No
  Sender: FDA-Public Use
  Company Number: 2024A086124

PATIENT
  Sex: Female

DRUGS (1)
  1. SAPHNELO [Suspect]
     Active Substance: ANIFROLUMAB\ANIFROLUMAB-FNIA
     Indication: Lupus-like syndrome
     Route: 041
     Dates: start: 20240409

REACTIONS (2)
  - Flushing [Recovered/Resolved]
  - Skin hypertrophy [Recovered/Resolved]

NARRATIVE: CASE EVENT DATE: 20240409
